FAERS Safety Report 14979652 (Version 1)
Quarter: 2018Q2

REPORT INFORMATION
  Report Type: Spontaneous
  Country: FR (occurrence: FR)
  Receive Date: 20180606
  Receipt Date: 20180606
  Transmission Date: 20180711
  Serious: Yes (Other)
  Sender: FDA-Public Use
  Company Number: PHHY2018FR012992

PATIENT
  Age: 77 Year
  Sex: Female

DRUGS (5)
  1. AMIKACINE [Suspect]
     Active Substance: AMIKACIN
     Indication: MYCOBACTERIUM ABSCESSUS INFECTION
     Dosage: 1000 MG, QD
     Route: 054
     Dates: start: 20180207, end: 20180228
  2. CLARITHROMYCINE ARROW [Suspect]
     Active Substance: CLARITHROMYCIN
     Indication: MYCOBACTERIUM ABSCESSUS INFECTION
     Dosage: 1000 MG, QD
     Route: 048
     Dates: start: 201711, end: 20180228
  3. LEVOTHYROX [Concomitant]
     Active Substance: LEVOTHYROXINE
     Indication: HYPOTHYROIDISM
     Dosage: 75 UG, QD
     Route: 048
  4. LAMPRENE [Suspect]
     Active Substance: CLOFAZIMINE
     Indication: MYCOBACTERIUM ABSCESSUS INFECTION
     Dosage: 50 MG, QD
     Route: 048
     Dates: start: 20180207, end: 20180228
  5. CORGARD [Concomitant]
     Active Substance: NADOLOL
     Indication: SINUS TACHYCARDIA
     Dosage: 40 MG, QD
     Route: 048

REACTIONS (3)
  - Hepatocellular injury [Recovering/Resolving]
  - Vision blurred [Not Recovered/Not Resolved]
  - Hepatic enzyme increased [Recovering/Resolving]

NARRATIVE: CASE EVENT DATE: 201802
